FAERS Safety Report 4968111-X (Version None)
Quarter: 2006Q1

REPORT INFORMATION
  Report Type: 
  Country: None (occurrence: None)
  Receive Date: 20060201
  Receipt Date: 20051005
  Transmission Date: 20060701
  Serious: No
  Sender: FDA-Public Use
  Company Number: 2005PV003008

PATIENT
  Age: 71 Year
  Sex: Female
  Weight: 100.6985 kg

DRUGS (10)
  1. BYETTA [Suspect]
     Indication: DIABETES MELLITUS NON-INSULIN-DEPENDENT
     Dosage: 5 MCG;BID;SC
     Route: 058
     Dates: start: 20050922
  2. HUMULIN N [Concomitant]
  3. AMARYL [Concomitant]
  4. TOPROL-XL [Concomitant]
  5. NIASPAN [Concomitant]
  6. AVANDIA [Concomitant]
  7. TEGRETOL [Concomitant]
  8. NEURONTIN [Concomitant]
  9. AMBIEN [Concomitant]
  10. ALTACE [Concomitant]

REACTIONS (2)
  - BLOOD GLUCOSE INCREASED [None]
  - INJECTION SITE HAEMORRHAGE [None]
